FAERS Safety Report 7618572-2 (Version None)
Quarter: 2011Q3

REPORT INFORMATION
  Report Type: 
  Country: None (occurrence: None)
  Receive Date: 20110718
  Receipt Date: 20110713
  Transmission Date: 20111222
  Serious: Yes (Life-Threatening, Hospitalization)
  Sender: FDA-Public Use
  Company Number: NO-PFIZER INC-2011158054

PATIENT
  Age: 43 Year
  Sex: Female

DRUGS (3)
  1. ALPRAZOLAM [Suspect]
     Indication: ANXIETY
     Dosage: 1 MG, AS NEEDED
     Route: 048
     Dates: start: 20110212
  2. ESCITALOPRAM [Concomitant]
     Indication: DEPRESSION
     Route: 048
  3. PARALGIN FORTE [Suspect]
     Dosage: UNK
     Route: 048

REACTIONS (1)
  - ANAPHYLACTIC REACTION [None]
